FAERS Safety Report 19920523 (Version 3)
Quarter: 2022Q1

REPORT INFORMATION
  Report Type: Spontaneous
  Country: BE (occurrence: BE)
  Receive Date: 20211005
  Receipt Date: 20220307
  Transmission Date: 20220423
  Serious: Yes (Hospitalization)
  Sender: FDA-Public Use
  Company Number: BE-PFIZER INC-202101069530

PATIENT
  Age: 63 Year
  Sex: Male
  Weight: 79 kg

DRUGS (43)
  1. RITUXIMAB [Suspect]
     Active Substance: RITUXIMAB
     Indication: Diffuse large B-cell lymphoma stage III
     Dosage: 375 MILLIGRAM/SQ. METER, 1Q3W (CYCLE 1-3), CONCENTRATE FOR SOULTION FOR INFUSION
     Route: 042
     Dates: start: 20210804
  2. CYTARABINE [Suspect]
     Active Substance: CYTARABINE
     Indication: Diffuse large B-cell lymphoma stage III
     Dosage: 2000 MILLIGRAM/SQ. METER, 1Q3W (CYCLE 1-3)
     Route: 058
     Dates: start: 20210805, end: 20210805
  3. CYTARABINE [Suspect]
     Active Substance: CYTARABINE
     Dosage: 2000 MILLIGRAM/SQ. METER, 1Q3W (CYCLE 1-3)
     Route: 042
     Dates: start: 20210804, end: 20210804
  4. EPCORITAMAB [Suspect]
     Active Substance: EPCORITAMAB
     Indication: Diffuse large B-cell lymphoma stage III
     Dosage: PRIMING DOSE: 0.16 MG, SINGLE, DUOBODY-CD3XCD20, CONCENTRATE FOR SOLUTION FOR INJECTION
     Route: 058
     Dates: start: 20210804, end: 20210804
  5. CARBOPLATIN [Suspect]
     Active Substance: CARBOPLATIN
     Indication: Diffuse large B-cell lymphoma stage III
     Dosage: UNK, 1Q3W (CYCLE 1-3), CONCENTRATE FOR SOULTION FOR INFUSION
     Route: 042
     Dates: start: 20210804
  6. DEXAMETHASONE [Suspect]
     Active Substance: DEXAMETHASONE
     Indication: Diffuse large B-cell lymphoma stage III
     Dosage: 40 MG, 1X/DAY, TABLET?DATE OF THE MOST RECENT DOSE OF DEXAMETHASONE: 07/AUG/2021
     Route: 042
     Dates: start: 20210804, end: 20210807
  7. XANAX [Concomitant]
     Active Substance: ALPRAZOLAM
     Dosage: UNK
     Dates: start: 20210728, end: 20210728
  8. AUGMENTIN [Concomitant]
     Active Substance: AMOXICILLIN\CLAVULANATE POTASSIUM
     Dosage: UNK
     Dates: start: 20210712, end: 20210722
  9. FILGRASTIM [Concomitant]
     Active Substance: FILGRASTIM
     Dosage: UNK
     Dates: start: 20210726, end: 20210804
  10. HUMULINE [Concomitant]
     Dosage: UNK
     Dates: start: 20210805, end: 20210809
  11. VITAMIN A PALMITATE [Concomitant]
     Active Substance: VITAMIN A PALMITATE
     Dosage: UNK
     Dates: start: 20210805
  12. ZOFRAN [Concomitant]
     Active Substance: ONDANSETRON HYDROCHLORIDE
     Dosage: UNK
     Dates: start: 20210808, end: 20210810
  13. MOXONIDINE [Concomitant]
     Active Substance: MOXONIDINE
     Dosage: UNK
     Dates: start: 20210719, end: 20210827
  14. ACYCLOVIR [Concomitant]
     Active Substance: ACYCLOVIR
     Dosage: UNK
     Dates: start: 20210621
  15. GLYCERIN\MINERAL OIL\PETROLATUM [Concomitant]
     Active Substance: GLYCERIN\MINERAL OIL\PETROLATUM
     Dosage: UNK
     Dates: start: 20210810, end: 20210813
  16. COLCHICINE [Concomitant]
     Active Substance: COLCHICINE
     Dosage: UNK
     Dates: start: 20210712, end: 20210804
  17. OMEPRAZOLE [Concomitant]
     Active Substance: OMEPRAZOLE
     Dosage: UNK
     Dates: start: 20210719
  18. ENOXAPARIN SODIUM [Concomitant]
     Active Substance: ENOXAPARIN SODIUM
     Dosage: UNK
     Dates: start: 20210719, end: 20210729
  19. LASIX [Concomitant]
     Active Substance: FUROSEMIDE
     Dosage: UNK
     Dates: start: 20210805, end: 20210811
  20. DEXAMETHASONE [Concomitant]
     Active Substance: DEXAMETHASONE
     Indication: Prophylaxis
     Dosage: 40 MG
     Route: 048
     Dates: start: 20210805, end: 20210805
  21. DEXAMETHASONE [Concomitant]
     Active Substance: DEXAMETHASONE
     Indication: Diffuse large B-cell lymphoma stage III
     Dosage: 40 MG, 1X/DAY, TABLET
     Route: 042
     Dates: start: 20210804, end: 20210807
  22. ONDANSETRON [Concomitant]
     Active Substance: ONDANSETRON
     Dosage: UNK
     Dates: start: 20210804
  23. XALATAN [Concomitant]
     Active Substance: LATANOPROST
     Dosage: UNK
     Dates: start: 20210718
  24. TRADONAL ODIS [Concomitant]
     Dosage: UNK
     Dates: start: 20210718
  25. CLEMASTINE FUMARATE [Concomitant]
     Active Substance: CLEMASTINE FUMARATE
     Indication: Premedication
     Dosage: 2 MG
     Route: 042
     Dates: start: 20210804, end: 20210804
  26. AMITRIPTYLINE HYDROCHLORIDE [Concomitant]
     Active Substance: AMITRIPTYLINE HYDROCHLORIDE
     Dosage: UNK
     Dates: start: 20210729, end: 20210927
  27. ESOMEPRAZOLE [Concomitant]
     Active Substance: ESOMEPRAZOLE
     Dosage: UNK
     Dates: start: 20210718
  28. BUMETANIDE [Concomitant]
     Active Substance: BUMETANIDE
     Dosage: UNK
     Dates: start: 20210806, end: 20210808
  29. MONOFREE DEXAMETHASON [DEXAMETHASONE] [Concomitant]
     Dosage: UNK
     Dates: start: 20210804
  30. ALIZAPRIDE HYDROCHLORIDE [Concomitant]
     Active Substance: ALIZAPRIDE HYDROCHLORIDE
     Dosage: UNK
     Dates: start: 20210804, end: 20210804
  31. BACTRIM [Concomitant]
     Active Substance: SULFAMETHOXAZOLE\TRIMETHOPRIM
     Dosage: UNK
     Dates: start: 20210718
  32. ACETAMINOPHEN [Concomitant]
     Active Substance: ACETAMINOPHEN
     Indication: Premedication
     Dosage: 1 G
     Route: 048
     Dates: start: 20210804, end: 20210804
  33. FEBUXOSTAT [Concomitant]
     Active Substance: FEBUXOSTAT
     Dosage: UNK
     Dates: start: 20201004
  34. HYALURONATE SODIUM\TREHALOSE [Concomitant]
     Active Substance: HYALURONATE SODIUM\TREHALOSE
     Dosage: UNK
     Dates: start: 20210804
  35. IBUPROFEN [Concomitant]
     Active Substance: IBUPROFEN
     Dosage: UNK
     Dates: start: 20210712, end: 20210714
  36. ACETAMINOPHEN [Concomitant]
     Active Substance: ACETAMINOPHEN
     Dosage: UNK
     Dates: start: 20210718, end: 20210804
  37. FASTURTEC [Concomitant]
     Active Substance: RASBURICASE
     Dosage: UNK
     Dates: start: 20210804, end: 20210812
  38. MOVICOL [Concomitant]
     Active Substance: POLYETHYLENE GLYCOL 3350\POTASSIUM CHLORIDE\SODIUM BICARBONATE\SODIUM CHLORIDE
     Dosage: UNK
     Dates: start: 20210810
  39. CHOLECALCIFEROL [Concomitant]
     Active Substance: CHOLECALCIFEROL
     Dosage: UNK
     Dates: start: 20210718
  40. LIPEGFILGRASTIM [Concomitant]
     Active Substance: LIPEGFILGRASTIM
     Dosage: UNK
     Dates: start: 20210805, end: 20210805
  41. LATANOPROST [Concomitant]
     Active Substance: LATANOPROST
     Dosage: UNK
     Dates: start: 20210719, end: 20210916
  42. LORAZEPAM [Concomitant]
     Active Substance: LORAZEPAM
     Dosage: UNK
     Dates: start: 20210804, end: 20210804
  43. FLUCONAZOLE [Concomitant]
     Active Substance: FLUCONAZOLE
     Dosage: UNK
     Dates: start: 20210804

REACTIONS (1)
  - Acute kidney injury [Recovered/Resolved]

NARRATIVE: CASE EVENT DATE: 20210807
